FAERS Safety Report 21701994 (Version 1)
Quarter: 2022Q4

REPORT INFORMATION
  Report Type: Report from Study
  Country: US (occurrence: US)
  Receive Date: 20221208
  Receipt Date: 20221208
  Transmission Date: 20230113
  Serious: No
  Sender: FDA-Public Use
  Company Number: US-002147023-NVSC2022US281459

PATIENT
  Sex: Female

DRUGS (1)
  1. KESIMPTA [Suspect]
     Active Substance: OFATUMUMAB
     Indication: Product used for unknown indication
     Dosage: UNK
     Route: 065

REACTIONS (7)
  - Peripheral swelling [Unknown]
  - Skin exfoliation [Unknown]
  - Erythema [Unknown]
  - Irritability [Unknown]
  - Impatience [Unknown]
  - Headache [Unknown]
  - Dizziness [Unknown]
